FAERS Safety Report 9408090 (Version 1)
Quarter: 2013Q3

REPORT INFORMATION
  Report Type: Spontaneous
  Country: US (occurrence: US)
  Receive Date: 20130718
  Receipt Date: 20130718
  Transmission Date: 20140515
  Serious: Yes (Hospitalization, Other)
  Sender: FDA-Public Use
  Company Number: US-ROXANE LABORATORIES, INC.-2013-RO-01165RO

PATIENT
  Age: 23 Year
  Sex: Male

DRUGS (2)
  1. MERCAPTOPURINE [Suspect]
     Indication: CROHN^S DISEASE
  2. INFLIXIMAB [Concomitant]

REACTIONS (5)
  - Periportal sinus dilatation [Recovered/Resolved]
  - Portal hypertension [Unknown]
  - Intestinal obstruction [Recovered/Resolved]
  - Abdominal abscess [Recovered/Resolved]
  - Ascites [Recovered/Resolved]
